FAERS Safety Report 18806762 (Version 1)
Quarter: 2021Q1

REPORT INFORMATION
  Report Type: Other
  Country: FR (occurrence: FR)
  Receive Date: 20210129
  Receipt Date: 20210129
  Transmission Date: 20210419
  Serious: Yes (Hospitalization)
  Sender: FDA-Public Use
  Company Number: FR-CADILA HEALTHCARE LIMITED-FR-ZYDUS-058058

PATIENT

DRUGS (15)
  1. BISOPROLOL [Interacting]
     Active Substance: BISOPROLOL
     Indication: PRODUCT USED FOR UNKNOWN INDICATION
     Dosage: 5 MILLIGRAM, QD
     Route: 048
  2. ATARAXONE [HYDROXYZINE HYDROCHLORIDE] [Interacting]
     Active Substance: HYDROXYZINE HYDROCHLORIDE
     Indication: STRESS
     Dosage: 25 MILLIGRAM
     Route: 048
  3. MIANSERINE HCL [Interacting]
     Active Substance: MIANSERIN HYDROCHLORIDE
     Indication: PRODUCT USED FOR UNKNOWN INDICATION
     Dosage: UNK
     Route: 048
  4. TRIFLUCAN [Interacting]
     Active Substance: FLUCONAZOLE
     Indication: OFF LABEL USE
  5. BISOPROLOL [Interacting]
     Active Substance: BISOPROLOL
     Indication: OFF LABEL USE
  6. BILASKA [Interacting]
     Active Substance: BILASTINE
     Indication: HYPERSENSITIVITY
     Dosage: 20 MILLIGRAM, QD
     Route: 048
  7. ALLERGODIL [Concomitant]
     Active Substance: AZELASTINE
     Indication: HYPERSENSITIVITY
     Route: 047
  8. TRIFLUCAN [Interacting]
     Active Substance: FLUCONAZOLE
     Indication: OESOPHAGEAL CANDIDIASIS
     Dosage: 100 MILLIGRAM, QD
     Route: 048
     Dates: start: 202009
  9. LANSOPRAZOLE. [Interacting]
     Active Substance: LANSOPRAZOLE
     Indication: OFF LABEL USE
  10. ATARAXONE [HYDROXYZINE HYDROCHLORIDE] [Interacting]
     Active Substance: HYDROXYZINE HYDROCHLORIDE
     Indication: OFF LABEL USE
  11. LANSOPRAZOLE. [Suspect]
     Active Substance: LANSOPRAZOLE
     Indication: HIATUS HERNIA
     Dosage: 30 MILLIGRAM
     Route: 048
  12. MIANSERINE HCL [Interacting]
     Active Substance: MIANSERIN HYDROCHLORIDE
     Indication: OFF LABEL USE
  13. BILASKA [Interacting]
     Active Substance: BILASTINE
     Indication: OFF LABEL USE
  14. MARINOL [ALLOPURINOL] [Interacting]
     Active Substance: ALLOPURINOL
     Indication: NEURALGIA
     Dosage: 2.5 MILLIGRAM, QD
     Route: 048
     Dates: start: 20200717, end: 20201002
  15. KETODERM [KETOCONAZOLE] [Concomitant]
     Indication: CANDIDA INFECTION
     Dosage: UNK
     Route: 003

REACTIONS (5)
  - Vertigo [Recovered/Resolved]
  - Drug interaction [Recovered/Resolved]
  - Condition aggravated [Recovered/Resolved]
  - Paraesthesia [Recovered/Resolved]
  - Off label use [Unknown]

NARRATIVE: CASE EVENT DATE: 20200929
